FAERS Safety Report 9483561 (Version 1)
Quarter: 2013Q3

REPORT INFORMATION
  Report Type: Spontaneous
  Country: CA (occurrence: CA)
  Receive Date: 20130828
  Receipt Date: 20130828
  Transmission Date: 20140515
  Serious: Yes (Other)
  Sender: FDA-Public Use
  Company Number: CA-AMGEN-KDL287321

PATIENT
  Age: 46 Year
  Sex: Male
  Weight: 86 kg

DRUGS (3)
  1. ENBREL [Suspect]
     Indication: PSORIATIC ARTHROPATHY
     Dosage: UNK UNK, QWK
     Route: 058
     Dates: start: 20080416
  2. METHOTREXATE [Concomitant]
     Dosage: UNK UNK, UNK
  3. MORPHINE [Concomitant]
     Dosage: UNK UNK, UNK

REACTIONS (2)
  - Encephalitis [Recovering/Resolving]
  - Oral herpes [Recovering/Resolving]
